FAERS Safety Report 12494017 (Version 4)
Quarter: 2016Q3

REPORT INFORMATION
  Report Type: Report from Study
  Country: FR (occurrence: FR)
  Receive Date: 20160623
  Receipt Date: 20160925
  Transmission Date: 20161109
  Serious: Yes (Hospitalization)
  Sender: FDA-Public Use
  Company Number: FR-ROCHE-1779060

PATIENT
  Age: 19 Year
  Sex: Male
  Weight: 52.15 kg

DRUGS (6)
  1. ATEZOLIZUMAB [Suspect]
     Active Substance: ATEZOLIZUMAB
     Indication: NEOPLASM
     Dosage: DATE OF MOST RECENT DOSE PRIOR TO ONSET OF EVENTS: 08/JUN/2016
     Route: 042
     Dates: start: 20160321
  2. PARACETAMOL CODEINE [Concomitant]
     Active Substance: ACETAMINOPHEN\CODEINE PHOSPHATE
     Indication: HEADACHE
  3. ZECLAR [Concomitant]
     Active Substance: CLARITHROMYCIN
     Indication: COUGH
     Route: 065
     Dates: start: 20160510, end: 20160522
  4. IBUPROFENE [Concomitant]
     Active Substance: IBUPROFEN
     Indication: CHEST PAIN
     Route: 065
     Dates: start: 20160608, end: 20160608
  5. TRILEPTAL [Concomitant]
     Active Substance: OXCARBAZEPINE
     Indication: EPILEPSY
     Route: 065
  6. PARACETAMOL CODEINE [Concomitant]
     Active Substance: ACETAMINOPHEN\CODEINE PHOSPHATE
     Indication: CHEST PAIN
     Route: 065
     Dates: start: 20160425

REACTIONS (3)
  - Dyspnoea [Not Recovered/Not Resolved]
  - Chest pain [Not Recovered/Not Resolved]
  - Influenza like illness [Recovered/Resolved]

NARRATIVE: CASE EVENT DATE: 20160611
